FAERS Safety Report 24218599 (Version 4)
Quarter: 2024Q4

REPORT INFORMATION
  Report Type: Spontaneous
  Country: ZA (occurrence: ZA)
  Receive Date: 20240816
  Receipt Date: 20241022
  Transmission Date: 20250115
  Serious: Yes (Death, Life-Threatening, Hospitalization, Disabling, Other)
  Sender: PFIZER
  Company Number: ZA-PFIZER INC-202400235748

PATIENT
  Age: 10 Month
  Sex: Female
  Weight: 7 kg

DRUGS (2)
  1. PRECEDEX [Suspect]
     Active Substance: DEXMEDETOMIDINE HYDROCHLORIDE
     Indication: Sedation
     Dosage: UNK
     Route: 042
  2. MIDAZOLAM HYDROCHLORIDE [Suspect]
     Active Substance: MIDAZOLAM HYDROCHLORIDE
     Dosage: UNK
     Route: 042

REACTIONS (15)
  - Off label use [Fatal]
  - Pneumothorax [Fatal]
  - Weight decreased [Fatal]
  - Fatigue [Fatal]
  - Pleural effusion [Fatal]
  - Abdominal distension [Fatal]
  - Generalised oedema [Recovered/Resolved]
  - Intestinal pseudo-obstruction [Fatal]
  - Infection [Fatal]
  - Pyrexia [Fatal]
  - Cardiac arrest [Fatal]
  - Seizure [Fatal]
  - Brain injury [Fatal]
  - Multiple organ dysfunction syndrome [Fatal]
  - Pneumonia [Unknown]

NARRATIVE: CASE EVENT DATE: 20240315
